FAERS Safety Report 5744452-3 (Version None)
Quarter: 2008Q2

REPORT INFORMATION
  Report Type: 
  Country: None (occurrence: None)
  Receive Date: 20080520
  Receipt Date: 20080508
  Transmission Date: 20081010
  Serious: Yes (Other)
  Sender: FDA-Public Use
  Company Number: US-SANOFI-SYNTHELABO-A03200800801

PATIENT
  Sex: Female
  Weight: 93.9 kg

DRUGS (9)
  1. LAMICTAL [Concomitant]
     Indication: AFFECTIVE DISORDER
     Route: 048
     Dates: end: 20070610
  2. XANAX [Concomitant]
     Indication: ANXIETY
     Dosage: 1 MG 1 TO 2 TABLETS BY MOUTH TWICE A DAY
     Route: 048
     Dates: end: 20070822
  3. SOMA [Concomitant]
     Indication: BACK PAIN
     Route: 048
  4. AMBIEN [Suspect]
     Indication: INSOMNIA
     Route: 048
     Dates: start: 19950101, end: 20070601
  5. MOMETASONE FUROATE [Concomitant]
     Indication: DYSPNOEA
     Route: 048
  6. LEVALBUTEROL HCL [Concomitant]
     Indication: DYSPNOEA
     Dosage: INHALE 2 PUFFS BY ORAL INHALATION EVERY 4 HOURS AS NEEDED
     Route: 048
  7. HALOPERIDOL [Concomitant]
     Indication: SLEEP DISORDER
     Dosage: 2MG TABLET TAKE 2 TABLETS BY MOUTH AT BEDTIME
     Route: 048
     Dates: end: 20070822
  8. OXYCODONE AND ACETAMINOPHEN [Concomitant]
     Indication: PAIN
     Dosage: 325MG/5MG 1 TABLET BY MOUTH TWICE A DAY
     Route: 048
  9. NICOTINE POLACRILEX [Concomitant]
     Indication: SMOKING CESSATION THERAPY
     Dosage: DISSOLVE 1 LOZENGE IN MOUTH AS DIRECTED
     Route: 048

REACTIONS (18)
  - AMNESIA [None]
  - ANXIETY [None]
  - BINGE EATING [None]
  - DEPRESSION [None]
  - DRUG ABUSE [None]
  - DRUG INEFFECTIVE [None]
  - DRUG TOLERANCE INCREASED [None]
  - FATIGUE [None]
  - FEELING ABNORMAL [None]
  - IMPAIRED DRIVING ABILITY [None]
  - IMPRISONMENT [None]
  - INAPPROPRIATE SCHEDULE OF DRUG ADMINISTRATION [None]
  - OBSESSIVE-COMPULSIVE DISORDER [None]
  - PRURITUS [None]
  - ROAD TRAFFIC ACCIDENT [None]
  - SOMNAMBULISM [None]
  - THINKING ABNORMAL [None]
  - TRICHOTILLOMANIA [None]
